FAERS Safety Report 6966785-5 (Version None)
Quarter: 2010Q3

REPORT INFORMATION
  Report Type: 
  Country: None (occurrence: None)
  Receive Date: 20100906
  Receipt Date: 20100826
  Transmission Date: 20110219
  Serious: Yes (Death, Hospitalization)
  Sender: FDA-Public Use
  Company Number: US-SANOFI-AVENTIS-2010SA052568

PATIENT
  Age: 74 Year
  Sex: Female

DRUGS (3)
  1. TAXOTERE [Suspect]
     Route: 051
     Dates: start: 20100601, end: 20100601
  2. TAXOTERE [Suspect]
     Route: 051
     Dates: start: 20100630, end: 20100630
  3. ERLOTINIB HYDROCHLORIDE [Suspect]
     Route: 048
     Dates: start: 20100601

REACTIONS (8)
  - ASTHENIA [None]
  - DECREASED APPETITE [None]
  - DIARRHOEA [None]
  - DISEASE PROGRESSION [None]
  - DYSPNOEA [None]
  - ESCHERICHIA INFECTION [None]
  - FATIGUE [None]
  - GASTROINTESTINAL FISTULA [None]
